FAERS Safety Report 6230876-7 (Version None)
Quarter: 2009Q2

REPORT INFORMATION
  Report Type: 
  Country: None (occurrence: None)
  Receive Date: 20090616
  Receipt Date: 20090604
  Transmission Date: 20091009
  Serious: Yes (Hospitalization)
  Sender: FDA-Public Use
  Company Number: PHHY2009FR22145

PATIENT
  Sex: Female

DRUGS (3)
  1. EXJADE [Suspect]
     Dosage: 2 DF, QD
     Route: 064
  2. METHOTREXATE [Concomitant]
     Dosage: 10 MG, QW
     Route: 064
  3. HYDREA [Concomitant]
     Route: 064

REACTIONS (1)
  - HYPOGLYCAEMIA NEONATAL [None]
